FAERS Safety Report 9322158 (Version 1)
Quarter: 2013Q2

REPORT INFORMATION
  Report Type: Spontaneous
  Country: US (occurrence: US)
  Receive Date: 20130531
  Receipt Date: 20130531
  Transmission Date: 20140414
  Serious: No
  Sender: FDA-Public Use
  Company Number: US-ASTRAZENECA-2013SE34836

PATIENT
  Age: 66 Year
  Sex: Female
  Weight: 63.5 kg

DRUGS (9)
  1. PULMICORT FLEXHALER [Suspect]
     Indication: BRONCHIAL HYPERREACTIVITY
     Route: 055
     Dates: start: 20130511
  2. PULMICORT FLEXHALER [Suspect]
     Indication: BRONCHIAL DISORDER
     Route: 055
     Dates: start: 20130511
  3. OMEPRAZOLE [Suspect]
     Route: 065
     Dates: start: 2012
  4. GENERIC LIPITOR [Concomitant]
  5. ASA [Concomitant]
  6. MVI [Concomitant]
  7. FISH OIL [Concomitant]
  8. CALCIUM [Concomitant]
  9. AZELASTINE HYDROCHLORIDE [Concomitant]

REACTIONS (6)
  - Aortic calcification [Unknown]
  - Bronchitis chronic [Unknown]
  - Chest pain [Unknown]
  - Dysgeusia [Unknown]
  - Increased upper airway secretion [Unknown]
  - Off label use [Unknown]
